FAERS Safety Report 9810765 (Version 1)
Quarter: 2014Q1

REPORT INFORMATION
  Report Type: Spontaneous
  Country: US (occurrence: US)
  Receive Date: 20140110
  Receipt Date: 20140110
  Transmission Date: 20141002
  Serious: Yes (Hospitalization)
  Sender: FDA-Public Use
  Company Number: US-SANOFI-AVENTIS-2012SA090090

PATIENT
  Age: 61 Year
  Sex: Male
  Weight: 73.5 kg

DRUGS (16)
  1. CLOPIDOGREL BISULFATE [Suspect]
     Indication: PRODUCT USED FOR UNKNOWN INDICATION
     Route: 065
     Dates: start: 200810, end: 20100710
  2. INVESTIGATIONAL DRUG [Suspect]
     Indication: CARDIOVASCULAR EVENT PROPHYLAXIS
     Route: 048
     Dates: start: 20081218, end: 20100702
  3. INVESTIGATIONAL DRUG [Suspect]
     Indication: CARDIOVASCULAR EVENT PROPHYLAXIS
     Route: 048
     Dates: start: 20100809
  4. ASPIRIN [Suspect]
     Indication: PRODUCT USED FOR UNKNOWN INDICATION
     Route: 065
     Dates: start: 200810, end: 20100710
  5. NAPROXEN [Suspect]
     Indication: BACK PAIN
     Route: 065
     Dates: start: 20100701, end: 20100710
  6. NAPROXEN [Suspect]
     Indication: PROSTATITIS
     Route: 065
     Dates: start: 20100701, end: 20100710
  7. CARVEDILOL [Concomitant]
     Dates: start: 200612, end: 20100710
  8. DIGOXIN [Concomitant]
     Dates: start: 200612, end: 20100710
  9. UNKNOWDRUG [Concomitant]
     Dates: start: 20090324, end: 20100710
  10. RAMIPRIL [Concomitant]
     Dates: start: 200612, end: 20100710
  11. FUROSEMIDE [Concomitant]
     Dates: start: 200612, end: 20100710
  12. POTASSIUM CHLORIDE [Concomitant]
     Dates: start: 200612, end: 20100710
  13. SPIRONOLACTONE [Concomitant]
     Dates: start: 200612, end: 20100710
  14. PEPCID [Concomitant]
     Dates: start: 200810, end: 20100710
  15. SOMA [Concomitant]
     Dates: start: 20100701, end: 20100710
  16. SULFAMETHOXAZOLE/TRIMETHOPRIM [Concomitant]
     Dosage: TDD: 1600/320MG?DOSE: 800/160 MG
     Dates: start: 20100701, end: 20100710

REACTIONS (1)
  - Gastrointestinal haemorrhage [Recovered/Resolved]
